FAERS Safety Report 7650189-6 (Version None)
Quarter: 2011Q3

REPORT INFORMATION
  Report Type: 
  Country: None (occurrence: None)
  Receive Date: 20110802
  Receipt Date: 20110719
  Transmission Date: 20111222
  Serious: Yes (Death)
  Sender: FDA-Public Use
  Company Number: JP-ROCHE-790013

PATIENT
  Sex: Female
  Weight: 61 kg

DRUGS (4)
  1. TEMODAL [Suspect]
     Dosage: NOTE: 300-320MG, 4 TIMES, AND 46 TIMES OF TOTAL
     Route: 048
     Dates: start: 20090101, end: 20090723
  2. TEMODAL [Suspect]
     Indication: ANAPLASTIC ASTROCYTOMA
     Dosage: NOTE: 300-320MG AND 30 CYCLES IN TOTAL
     Route: 048
     Dates: start: 20041001, end: 20070116
  3. TEMODAL [Suspect]
     Dosage: NOTE: 300-320MG, 12 CYCLES, AND TOTAL 30 CYCLES
     Route: 048
     Dates: start: 20071219, end: 20081023
  4. AVASTIN [Suspect]
     Indication: ANAPLASTIC ASTROCYTOMA
     Route: 041
     Dates: start: 20090903, end: 20091119

REACTIONS (2)
  - LYMPHOCYTE COUNT DECREASED [None]
  - DISEASE PROGRESSION [None]
